FAERS Safety Report 10359239 (Version 1)
Quarter: 2014Q3

REPORT INFORMATION
  Report Type: Spontaneous
  Country: US (occurrence: None)
  Receive Date: 20140731
  Receipt Date: 20140731
  Transmission Date: 20150326
  Serious: Yes (Disabling)
  Sender: FDA-Public Use
  Company Number: None

PATIENT
  Age: 14 Year
  Sex: Female
  Weight: 81.65 kg

DRUGS (1)
  1. ORAP [Suspect]
     Active Substance: PIMOZIDE
     Indication: TOURETTE^S DISORDER
     Dosage: 2, ONCE DAILY, TAKEN BY MOUTH
     Route: 048

REACTIONS (3)
  - Fatigue [None]
  - Weight increased [None]
  - Feeling abnormal [None]

NARRATIVE: CASE EVENT DATE: 19941010
